FAERS Safety Report 6138584-8 (Version None)
Quarter: 2009Q1

REPORT INFORMATION
  Report Type: 
  Country: None (occurrence: None)
  Receive Date: 20090327
  Receipt Date: 20090317
  Transmission Date: 20090719
  Serious: Yes (Death)
  Sender: FDA-Public Use
  Company Number: 1000005452

PATIENT
  Age: 80 Year
  Sex: Male

DRUGS (2)
  1. MEMANTINE HCL [Suspect]
     Indication: DEMENTIA ALZHEIMER'S TYPE
     Dosage: 20 MG (20MG, 1 IN 1 D), ORAL
     Route: 048
     Dates: start: 20070423, end: 20071001
  2. EXELON [Concomitant]

REACTIONS (1)
  - DEATH [None]
